FAERS Safety Report 8916086 (Version 1)
Quarter: 2012Q4

REPORT INFORMATION
  Report Type: Report from Study
  Country: JP (occurrence: JP)
  Receive Date: 20121119
  Receipt Date: 20121119
  Transmission Date: 20130627
  Serious: Yes (Hospitalization, Other)
  Sender: FDA-Public Use
  Company Number: JP-GILEAD-2012-0064183

PATIENT
  Age: 67 Year
  Sex: Male

DRUGS (3)
  1. AMBRISENTAN [Suspect]
     Indication: PULMONARY ARTERIAL HYPERTENSION
     Dosage: 2.5 mg, QD
     Route: 048
     Dates: start: 20120327, end: 20120402
  2. REVATIO [Concomitant]
     Indication: PULMONARY ARTERIAL HYPERTENSION
     Dosage: UNK
     Route: 048
  3. REVATIO [Concomitant]
     Route: 048

REACTIONS (3)
  - Pulmonary hypertension [Unknown]
  - Cardiac failure [Unknown]
  - Fluid retention [Recovered/Resolved]
